FAERS Safety Report 4796777-6 (Version None)
Quarter: 2005Q4

REPORT INFORMATION
  Report Type: 
  Country: None (occurrence: None)
  Receive Date: 20051013
  Receipt Date: 20050707
  Transmission Date: 20060501
  Serious: Yes (Other)
  Sender: FDA-Public Use
  Company Number: 200515916US

PATIENT
  Sex: Female
  Weight: 72.7 kg

DRUGS (7)
  1. ALLEGRA-D [Suspect]
     Indication: HYPERSENSITIVITY
     Route: 048
     Dates: start: 20050210
  2. ALLEGRA-D [Suspect]
     Indication: SINUS DISORDER
     Route: 048
     Dates: start: 20050210
  3. NEXIUM [Concomitant]
     Indication: GASTROOESOPHAGEAL REFLUX DISEASE
  4. CRESTOR [Concomitant]
     Indication: BLOOD CHOLESTEROL
  5. PREMARIN [Concomitant]
  6. LUNESTA [Concomitant]
  7. DISOPYRAMIDE [Concomitant]
     Indication: CARDIAC FLUTTER
     Dates: start: 19990101

REACTIONS (4)
  - ASTHENIA [None]
  - ATRIAL FIBRILLATION [None]
  - CARDIAC FLUTTER [None]
  - PAIN [None]
